FAERS Safety Report 6454435-6 (Version None)
Quarter: 2009Q4

REPORT INFORMATION
  Report Type: 
  Country: None (occurrence: None)
  Receive Date: 20091124
  Receipt Date: 20091113
  Transmission Date: 20100525
  Serious: Yes (Other)
  Sender: FDA-Public Use
  Company Number: PHHY2009GR50068

PATIENT
  Sex: Female

DRUGS (6)
  1. EXELON [Suspect]
     Indication: DEMENTIA
     Dosage: UNK
     Route: 062
     Dates: start: 20090401, end: 20090601
  2. CALCIPHAR [Concomitant]
  3. COAPROVEL [Concomitant]
  4. XANAX [Concomitant]
  5. LOXITAN [Concomitant]
  6. DIFEND [Concomitant]

REACTIONS (3)
  - APPLICATION SITE DERMATITIS [None]
  - BACK INJURY [None]
  - DERMATITIS CONTACT [None]
